FAERS Safety Report 18269202 (Version 1)
Quarter: 2020Q3

REPORT INFORMATION
  Report Type: Spontaneous
  Country: FR (occurrence: FR)
  Receive Date: 20200915
  Receipt Date: 20200915
  Transmission Date: 20201103
  Serious: No
  Sender: FDA-Public Use
  Company Number: FR-JAZZ-2019-FR-015248

PATIENT

DRUGS (3)
  1. KIDROLASE [Suspect]
     Active Substance: ASPARAGINASE
     Dosage: UNKNOWN DOSE
     Dates: start: 20191031
  2. KIDROLASE [Suspect]
     Active Substance: ASPARAGINASE
     Indication: ACUTE MYELOID LEUKAEMIA
     Dosage: UNKNOWN DOSE
     Dates: start: 20191004
  3. KIDROLASE [Suspect]
     Active Substance: ASPARAGINASE
     Dosage: UNKNOWN DOSE
     Dates: start: 20191018

REACTIONS (1)
  - Chills [Unknown]

NARRATIVE: CASE EVENT DATE: 20191031
